FAERS Safety Report 4566777-X (Version None)
Quarter: 2005Q1

REPORT INFORMATION
  Report Type: 
  Country: None (occurrence: None)
  Receive Date: 20050201
  Receipt Date: 20011016
  Transmission Date: 20050727
  Serious: Yes (Other)
  Sender: FDA-Public Use
  Company Number: US-BRISTOL-MYERS SQUIBB COMPANY-11542750

PATIENT
  Age: 44 Year
  Sex: Female

DRUGS (11)
  1. STADOL [Suspect]
     Route: 045
     Dates: start: 19980102, end: 20010401
  2. DIAZEPAM [Concomitant]
  3. ACETAMINOPHEN AND CODEINE PHOSPHATE [Concomitant]
  4. PROMETHAZINE [Concomitant]
  5. PROPOXYPHENE HCL+APAP+CAFFEINE [Concomitant]
  6. HYDROCODONE + ACETAMINOPHEN [Concomitant]
  7. CYCLOBENZAPRINE [Concomitant]
  8. RANITIDINE [Concomitant]
  9. VERAPAMIL [Concomitant]
  10. VIOXX [Concomitant]
  11. ULTRAM [Concomitant]

REACTIONS (1)
  - DEPENDENCE [None]
